FAERS Safety Report 24710967 (Version 1)
Quarter: 2024Q4

REPORT INFORMATION
  Report Type: Report from Study
  Country: US (occurrence: US)
  Receive Date: 20241209
  Receipt Date: 20241209
  Transmission Date: 20250115
  Serious: Yes (Other)
  Sender: ABBVIE
  Company Number: US-ABBVIE-6035524

PATIENT
  Age: 68 Year
  Sex: Female

DRUGS (1)
  1. SKYRIZI [Suspect]
     Active Substance: RISANKIZUMAB-RZAA
     Indication: Crohn^s disease
     Route: 058
     Dates: start: 20240424

REACTIONS (4)
  - Surgery [Recovering/Resolving]
  - Arthralgia [Recovering/Resolving]
  - Multiple allergies [Recovering/Resolving]
  - Allergic respiratory symptom [Recovering/Resolving]

NARRATIVE: CASE EVENT DATE: 20240101
